FAERS Safety Report 8588883-5 (Version None)
Quarter: 2012Q3

REPORT INFORMATION
  Report Type: 
  Country: None (occurrence: None)
  Receive Date: 20120813
  Receipt Date: 20120807
  Transmission Date: 20120928
  Serious: Yes (Hospitalization)
  Sender: FDA-Public Use
  Company Number: PE-PFIZER INC-2012193582

PATIENT
  Age: 12 Year
  Sex: Female

DRUGS (1)
  1. GENOTROPIN [Suspect]
     Dosage: 3.6 IU, UNK
     Route: 030
     Dates: start: 20120806

REACTIONS (2)
  - VOMITING [None]
  - INCORRECT ROUTE OF DRUG ADMINISTRATION [None]
